FAERS Safety Report 9290728 (Version 2)
Quarter: 2013Q2

REPORT INFORMATION
  Report Type: Spontaneous
  Country: JP (occurrence: JP)
  Receive Date: 20130515
  Receipt Date: 20130520
  Transmission Date: 20140414
  Serious: Yes (Other)
  Sender: FDA-Public Use
  Company Number: JP-PFIZER INC-2013148203

PATIENT
  Sex: Male

DRUGS (1)
  1. HALCION [Suspect]

REACTIONS (1)
  - Road traffic accident [Unknown]
